FAERS Safety Report 24527103 (Version 1)
Quarter: 2024Q4

REPORT INFORMATION
  Report Type: Report from Study
  Country: US (occurrence: US)
  Receive Date: 20241021
  Receipt Date: 20241021
  Transmission Date: 20250114
  Serious: No
  Sender: ROCHE
  Company Number: US-ROCHE-3461853

PATIENT
  Sex: Female

DRUGS (2)
  1. COTELLIC [Suspect]
     Active Substance: COBIMETINIB
     Indication: Malignant melanoma stage IV
     Route: 065
     Dates: start: 20230923
  2. ZELBORAF [Suspect]
     Active Substance: VEMURAFENIB
     Indication: Malignant melanoma stage IV
     Dosage: 3 OF THE 240MGS, MORNING AND NIGHT
     Route: 065
     Dates: start: 20230923

REACTIONS (1)
  - Neoplasm recurrence [Not Recovered/Not Resolved]
